FAERS Safety Report 9256703 (Version 3)
Quarter: 2013Q3

REPORT INFORMATION
  Report Type: Spontaneous
  Country: US (occurrence: US)
  Receive Date: 20130426
  Receipt Date: 20130930
  Transmission Date: 20140515
  Serious: Yes (Other)
  Sender: FDA-Public Use
  Company Number: US-ASTRAZENECA-2013SE27272

PATIENT
  Age: 70 Year
  Sex: Female
  Weight: 54.4 kg

DRUGS (17)
  1. OMEPRAZOLE [Suspect]
     Indication: DYSPEPSIA
     Route: 048
     Dates: start: 2009
  2. PRAVASTATIN [Concomitant]
     Indication: BLOOD CHOLESTEROL ABNORMAL
     Dates: start: 20070227
  3. PROPRANOLOL [Concomitant]
     Indication: HYPERTENSION
  4. PROPRANOLOL [Concomitant]
     Indication: HYPERTENSION
     Dates: start: 20070227
  5. PROPRANOLOL [Concomitant]
     Indication: HYPERTENSION
  6. LISINOPRIL [Concomitant]
     Indication: HYPERTENSION
     Dates: start: 20070219
  7. AMLODIPINE [Concomitant]
     Indication: HYPERTENSION
     Dates: start: 20070606
  8. CITALOPRAM [Concomitant]
     Indication: ANXIETY
     Dates: start: 20070606
  9. LEVOXYL [Concomitant]
     Indication: THYROID DISORDER
  10. CALCIUM WITH VIT D [Concomitant]
  11. BABY ASPIRIN [Concomitant]
  12. VITAMIN FISH OIL [Concomitant]
  13. NEXIUM [Suspect]
     Indication: DYSPEPSIA
     Route: 048
     Dates: start: 2002, end: 2009
  14. NEXIUM [Suspect]
     Indication: GASTROOESOPHAGEAL REFLUX DISEASE
     Route: 048
     Dates: start: 2002, end: 2009
  15. NEXIUM [Suspect]
     Indication: DYSPEPSIA
     Route: 048
     Dates: start: 20070606
  16. NEXIUM [Suspect]
     Indication: GASTROOESOPHAGEAL REFLUX DISEASE
     Route: 048
     Dates: start: 20070606
  17. OMEPRAZOLE [Suspect]
     Indication: GASTROOESOPHAGEAL REFLUX DISEASE
     Route: 048
     Dates: start: 2009

REACTIONS (11)
  - Thoracic vertebral fracture [Unknown]
  - Ankle fracture [Unknown]
  - Osteoporosis [Unknown]
  - Bone disorder [Unknown]
  - Multiple fractures [Unknown]
  - Osteoarthritis [Unknown]
  - Bone pain [Unknown]
  - Cataract [Unknown]
  - Arthritis [Unknown]
  - Bone loss [Unknown]
  - Vitamin D deficiency [Unknown]
